FAERS Safety Report 7058581 (Version 2)
Quarter: 2013Q2

REPORT INFORMATION
  Report Type: Spontaneous
  Country: US (occurrence: US)
  Receive Date: 20090722
  Receipt Date: 20130429
  Transmission Date: 20140414
  Serious: Yes (Other)
  Sender: FDA-Public Use
  Company Number: US-ASTRAZENECA-2007UW01783

PATIENT
  Age: 49 Year
  Sex: Female
  Weight: 71.7 kg

DRUGS (30)
  1. SEROQUEL [Suspect]
     Indication: BIPOLAR DISORDER
     Dosage: 50-500 MG (FLUCTUATING)
     Route: 048
     Dates: start: 20030414, end: 20030518
  2. SEROQUEL [Suspect]
     Indication: BIPOLAR DISORDER
     Route: 048
     Dates: start: 200308, end: 200605
  3. SEROQUEL [Suspect]
     Indication: BIPOLAR DISORDER
     Dosage: 50-500 MG (FLUCTUATING)
     Route: 048
     Dates: start: 20031007, end: 20060502
  4. PULMICORT FLEXHALER [Suspect]
     Route: 055
  5. LEXAPRO [Concomitant]
     Dates: start: 2005
  6. RISPERDAL [Concomitant]
     Indication: DEPRESSION
     Dates: start: 2000
  7. ZYPREXA [Concomitant]
     Indication: DEPRESSION
     Dates: start: 2000, end: 2000
  8. GEODON [Concomitant]
     Dates: start: 2005, end: 2005
  9. TRAZADONE [Concomitant]
     Dates: start: 2005, end: 2005
  10. WELLBUTRIN SR [Concomitant]
  11. MIRTAZAPINE [Concomitant]
  12. FLUOXETINE [Concomitant]
  13. PROTONIX [Concomitant]
  14. ZIPRASIDONE [Concomitant]
  15. TRAZODONE [Concomitant]
  16. PROMETHAZINE HYDROCHLORIDE [Concomitant]
  17. LOPID [Concomitant]
  18. RISPERIDONE [Concomitant]
  19. PROMETHAZINE-CODEINE [Concomitant]
  20. NOVOLOG [Concomitant]
  21. LANTUS [Concomitant]
  22. SINGULAIR [Concomitant]
  23. COMBIVENT [Concomitant]
  24. HYDROCODONE/ ACETAMINOPHEN [Concomitant]
  25. IBUPROFEN [Concomitant]
  26. VYTORIN [Concomitant]
  27. FLUOCINONIDE [Concomitant]
  28. GABAPENTIN [Concomitant]
  29. PREDNISONE [Concomitant]
  30. TYLENOL [Concomitant]

REACTIONS (5)
  - Neuropathy peripheral [Unknown]
  - Diabetic neuropathy [Unknown]
  - Diabetes mellitus [Unknown]
  - Type 2 diabetes mellitus [Unknown]
  - Lung disorder [Unknown]
